FAERS Safety Report 9715103 (Version 1)
Quarter: 2013Q4

REPORT INFORMATION
  Report Type: Spontaneous
  Country: US (occurrence: US)
  Receive Date: 20131126
  Receipt Date: 20131126
  Transmission Date: 20140711
  Serious: No
  Sender: FDA-Public Use
  Company Number: US-009507513-1311USA008524

PATIENT
  Sex: Female

DRUGS (1)
  1. ASMANEX TWISTHALER [Suspect]
     Indication: COUGH
     Dosage: 1 PUFF TWICE DAILY
     Route: 055

REACTIONS (4)
  - Ageusia [Unknown]
  - Drug ineffective [Unknown]
  - Drug dose omission [Unknown]
  - Off label use [Unknown]
